FAERS Safety Report 4508555-3 (Version None)
Quarter: 2004Q4

REPORT INFORMATION
  Report Type: 
  Country: None (occurrence: None)
  Receive Date: 20041123
  Receipt Date: 20040331
  Transmission Date: 20050328
  Serious: No
  Sender: FDA-Public Use
  Company Number: US-GLAXOSMITHKLINE-A0505382A

PATIENT
  Age: 66 Year
  Sex: Male

DRUGS (5)
  1. WELLBUTRIN SR [Suspect]
     Indication: DEPRESSION
     Dosage: 150MG TWICE PER DAY
     Route: 048
     Dates: start: 20040320
  2. KLONOPIN [Concomitant]
  3. LOPID [Concomitant]
  4. TIMOPTIC [Concomitant]
  5. XALATAN [Concomitant]

REACTIONS (2)
  - DRY MOUTH [None]
  - HEADACHE [None]
